FAERS Safety Report 21289733 (Version 1)
Quarter: 2022Q3

REPORT INFORMATION
  Report Type: Spontaneous
  Country: US (occurrence: US)
  Receive Date: 20220902
  Receipt Date: 20220902
  Transmission Date: 20221027
  Serious: Yes (Other)
  Sender: FDA-Public Use
  Company Number: US-BRISTOL-MYERS SQUIBB COMPANY-2022-095716

PATIENT
  Age: 88 Year
  Sex: Female
  Weight: 85.28 kg

DRUGS (1)
  1. POMALYST [Suspect]
     Active Substance: POMALIDOMIDE
     Indication: Plasma cell myeloma
     Route: 048
     Dates: start: 20180901, end: 20210701

REACTIONS (4)
  - Drug intolerance [Recovered/Resolved]
  - Compression fracture [Recovered/Resolved]
  - Nasopharyngitis [Recovered/Resolved]
  - Fall [Recovered/Resolved]
